APPROVED DRUG PRODUCT: ZONISAMIDE
Active Ingredient: ZONISAMIDE
Strength: 50MG
Dosage Form/Route: CAPSULE;ORAL
Application: A077650 | Product #002
Applicant: CHARTWELL RX SCIENCES LLC
Approved: Apr 20, 2006 | RLD: No | RS: No | Type: DISCN